FAERS Safety Report 23370304 (Version 1)
Quarter: 2024Q1

REPORT INFORMATION
  Report Type: Spontaneous
  Country: US (occurrence: US)
  Receive Date: 20240105
  Receipt Date: 20240105
  Transmission Date: 20240409
  Serious: No
  Sender: FDA-Public Use
  Company Number: US-Blueprint Medicines Corporation-1892

PATIENT
  Sex: Female

DRUGS (1)
  1. AYVAKIT [Suspect]
     Active Substance: AVAPRITINIB
     Indication: Systemic mastocytosis
     Route: 065
     Dates: start: 20221124

REACTIONS (6)
  - Onychomadesis [Unknown]
  - Onychoclasis [Unknown]
  - Nail discolouration [Unknown]
  - Hair texture abnormal [Unknown]
  - Pruritus [Unknown]
  - Erythema [Unknown]
